FAERS Safety Report 20857896 (Version 2)
Quarter: 2022Q2

REPORT INFORMATION
  Report Type: Spontaneous
  Country: US (occurrence: US)
  Receive Date: 20220521
  Receipt Date: 20220625
  Transmission Date: 20220721
  Serious: No
  Sender: FDA-Public Use
  Company Number: US-BRISTOL-MYERS SQUIBB COMPANY-2022-039153

PATIENT
  Age: 50 Year
  Sex: Male

DRUGS (1)
  1. REVLIMID [Suspect]
     Active Substance: LENALIDOMIDE
     Indication: Plasma cell myeloma
     Dosage: FREQUENCY ; TAKE 1 CAPSULE BY MOUTH  EVERY DAY
     Route: 048
     Dates: start: 20210217

REACTIONS (4)
  - Skin disorder [Unknown]
  - Oral pain [Unknown]
  - Illness [Unknown]
  - Infection [Unknown]
